FAERS Safety Report 6604361-4 (Version None)
Quarter: 2010Q1

REPORT INFORMATION
  Report Type: 
  Country: None (occurrence: None)
  Receive Date: 20100226
  Receipt Date: 20090914
  Transmission Date: 20100710
  Serious: No
  Sender: FDA-Public Use
  Company Number: A0805471A

PATIENT
  Age: 61 Year
  Sex: Male

DRUGS (3)
  1. LAMICTAL CD [Suspect]
     Route: 048
     Dates: start: 20090701
  2. LAMOTRIGINE [Suspect]
     Route: 048
     Dates: end: 20090801
  3. ANTIBIOTICS [Suspect]

REACTIONS (1)
  - ABDOMINAL PAIN UPPER [None]
